FAERS Safety Report 22340159 (Version 1)
Quarter: 2023Q2

REPORT INFORMATION
  Report Type: Report from Study
  Country: US (occurrence: US)
  Receive Date: 20230518
  Receipt Date: 20230518
  Transmission Date: 20230722
  Serious: Yes (Other)
  Sender: FDA-Public Use
  Company Number: US-JAZZ PHARMACEUTICALS-2023-US-007259

PATIENT
  Sex: Male

DRUGS (4)
  1. XYREM [Suspect]
     Active Substance: SODIUM OXYBATE
     Indication: Hypersomnia
     Dosage: UNK
  2. ADDERALL [Suspect]
     Active Substance: AMPHETAMINE ASPARTATE\AMPHETAMINE SULFATE\DEXTROAMPHETAMINE SACCHARATE\DEXTROAMPHETAMINE SULFATE
     Indication: Product used for unknown indication
     Dosage: UNK
  3. LIPITOR [Suspect]
     Active Substance: ATORVASTATIN CALCIUM
     Indication: Product used for unknown indication
     Dosage: UNK
  4. METHYLPREDNISOLONE [Concomitant]
     Active Substance: METHYLPREDNISOLONE
     Indication: Product used for unknown indication

REACTIONS (11)
  - Suicidal ideation [Unknown]
  - Hypertension [Unknown]
  - Coronary artery disease [Recovered/Resolved]
  - Insomnia [Unknown]
  - Bronchial hyperreactivity [Recovered/Resolved]
  - Hyperlipidaemia [Unknown]
  - Drug intolerance [Unknown]
  - Chronic sinusitis [Unknown]
  - Sleep apnoea syndrome [Unknown]
  - Myalgia [Unknown]
  - Off label use [Unknown]
